FAERS Safety Report 15259660 (Version 1)
Quarter: 2018Q3

REPORT INFORMATION
  Report Type: Spontaneous
  Country: MX (occurrence: MX)
  Receive Date: 20180809
  Receipt Date: 20180809
  Transmission Date: 20181010
  Serious: Yes (Death, Hospitalization, Other)
  Sender: FDA-Public Use
  Company Number: MX-PFIZER INC-2018319068

PATIENT
  Age: 74 Year
  Sex: Male
  Weight: 70 kg

DRUGS (7)
  1. CORDARONE [Suspect]
     Active Substance: AMIODARONE HYDROCHLORIDE
     Indication: ARRHYTHMIA
     Dosage: 200 MG, DAILY
     Route: 048
     Dates: start: 2015, end: 20180606
  2. JAKAVI [Concomitant]
     Active Substance: RUXOLITINIB
     Indication: ESSENTIAL THROMBOCYTHAEMIA
     Dosage: 20 MG, DAILY
     Route: 048
     Dates: start: 2016, end: 20180606
  3. TAFIROL 1 G [Concomitant]
     Indication: PAIN
     Dosage: 1 DF, 3X/DAY
     Route: 048
  4. SOLORO 7 [Concomitant]
     Indication: PAIN
     Dosage: 1 PATCH APPLICATION OF BUPRENORFIN (PARCHE SOLORO) EVERY WEEK
     Dates: start: 201806, end: 20180606
  5. TEMERIT [Concomitant]
     Active Substance: NEBIVOLOL
     Dosage: 0.5 DF, DAILY
     Route: 048
     Dates: start: 2012, end: 20180606
  6. TRADOL [Concomitant]
     Active Substance: TRAMADOL HYDROCHLORIDE
     Indication: PAIN
     Dosage: 12 GTT, DAILY
     Route: 048
     Dates: start: 201804, end: 20180606
  7. HYDREA [Concomitant]
     Active Substance: HYDROXYUREA
     Indication: ESSENTIAL THROMBOCYTHAEMIA
     Dosage: 1 DF, DAILY
     Route: 048
     Dates: start: 2015, end: 2016

REACTIONS (3)
  - Gout [Not Recovered/Not Resolved]
  - Hypertension [Fatal]
  - Essential thrombocythaemia [Fatal]

NARRATIVE: CASE EVENT DATE: 2016
